FAERS Safety Report 15287021 (Version 1)
Quarter: 2018Q3

REPORT INFORMATION
  Report Type: Spontaneous
  Country: TR (occurrence: TR)
  Receive Date: 20180817
  Receipt Date: 20180817
  Transmission Date: 20181010
  Serious: Yes (Hospitalization)
  Sender: FDA-Public Use
  Company Number: TR-ROCHE-2153825

PATIENT
  Age: 65 Year
  Sex: Male
  Weight: 60 kg

DRUGS (3)
  1. ACTEMRA [Suspect]
     Active Substance: TOCILIZUMAB
     Indication: TEMPORAL ARTERITIS
     Route: 042
     Dates: start: 20180511, end: 20180511
  2. ACTEMRA [Suspect]
     Active Substance: TOCILIZUMAB
     Route: 042
     Dates: start: 20180527, end: 20180527
  3. DELTACORTILEN [Concomitant]
     Active Substance: PREDNISOLONE ACETATE
     Indication: TEMPORAL ARTERITIS
     Route: 048
     Dates: start: 20180711, end: 20180711

REACTIONS (5)
  - Intentional product use issue [Unknown]
  - Ecchymosis [Recovered/Resolved]
  - Hypofibrinogenaemia [Recovered/Resolved]
  - Off label use [Unknown]
  - Blood fibrinogen decreased [Recovered/Resolved]

NARRATIVE: CASE EVENT DATE: 20180525
